FAERS Safety Report 21388682 (Version 2)
Quarter: 2023Q1

REPORT INFORMATION
  Report Type: Spontaneous
  Country: AU (occurrence: AU)
  Receive Date: 20220928
  Receipt Date: 20230221
  Transmission Date: 20230417
  Serious: Yes (Other)
  Sender: FDA-Public Use
  Company Number: AU-BAUSCHBL-2022BNL000676

PATIENT
  Age: 41 Year
  Sex: Male

DRUGS (8)
  1. DEXAMETHASONE [Suspect]
     Active Substance: DEXAMETHASONE
     Indication: Insulinoma
     Route: 065
     Dates: start: 2022
  2. OCTREOTIDE [Suspect]
     Active Substance: OCTREOTIDE
     Indication: Insulinoma
     Route: 065
  3. DEXTROSE [Suspect]
     Active Substance: DEXTROSE
     Indication: Insulinoma
     Route: 065
     Dates: start: 2022
  4. EVEROLIMUS [Suspect]
     Active Substance: EVEROLIMUS
     Indication: Insulinoma
     Route: 065
     Dates: start: 2022
  5. CAPECITABINE [Suspect]
     Active Substance: CAPECITABINE
     Indication: Insulinoma
     Dosage: CAPTEM CHEMOTHERAPY
     Route: 065
     Dates: start: 2022
  6. TEMOZOLOMIDE [Suspect]
     Active Substance: TEMOZOLOMIDE
     Indication: Insulinoma
     Dosage: CAPTEM CHEMOTHERAPY
     Route: 065
     Dates: start: 2022
  7. DIAZOXIDE [Concomitant]
     Active Substance: DIAZOXIDE
     Indication: Insulinoma
     Route: 065
     Dates: start: 2021
  8. PREDNISOLONE [Concomitant]
     Active Substance: PREDNISOLONE
     Indication: Insulinoma
     Dates: start: 2021

REACTIONS (1)
  - Therapy non-responder [Unknown]

NARRATIVE: CASE EVENT DATE: 20220101
